FAERS Safety Report 18755268 (Version 1)
Quarter: 2021Q1

REPORT INFORMATION
  Report Type: Spontaneous
  Country: JP (occurrence: JP)
  Receive Date: 20210119
  Receipt Date: 20210119
  Transmission Date: 20210419
  Serious: Yes (Other)
  Sender: FDA-Public Use
  Company Number: JP-GLAXOSMITHKLINE-JP2021006965

PATIENT
  Age: 70 Year
  Sex: Female

DRUGS (11)
  1. NEXIUM [Suspect]
     Active Substance: ESOMEPRAZOLE MAGNESIUM
     Dosage: UNK
     Route: 048
  2. VITAMEDIN [Concomitant]
     Active Substance: CYANOCOBALAMIN\PYRIDOXINE HYDROCHLORIDE\THIAMINE
     Indication: RHEUMATIC DISORDER
     Dosage: 1 DF, BID
     Route: 048
  3. EPPIKAJUTSUTO [Concomitant]
     Indication: RHEUMATIC DISORDER
     Dosage: UNK, BID
  4. PARIET [Suspect]
     Active Substance: RABEPRAZOLE SODIUM
     Dosage: UNK
     Route: 048
  5. RIMATIL [Concomitant]
     Active Substance: BUCILLAMINE
     Dosage: 75 MG, BID
     Route: 048
  6. SELBEX FINE GRANULES 10% [Concomitant]
     Dosage: 0.5 G, BID
     Route: 048
  7. TAKEPRON [Suspect]
     Active Substance: LANSOPRAZOLE
     Dosage: UNK
     Route: 048
  8. BOIOGITO [Concomitant]
     Indication: RHEUMATIC DISORDER
     Dosage: UNK UNK, BID
  9. ZANTAC [Suspect]
     Active Substance: RANITIDINE HYDROCHLORIDE
     Dosage: 150 MG, BID
     Route: 048
  10. RIMATIL [Concomitant]
     Active Substance: BUCILLAMINE
     Indication: RHEUMATIC DISORDER
     Dosage: 50 MG, BID
     Route: 048
  11. RIMATIL [Concomitant]
     Active Substance: BUCILLAMINE
     Dosage: UNK UNK, 1D
     Route: 048
     Dates: start: 2020, end: 2020

REACTIONS (10)
  - Eye haemorrhage [Unknown]
  - Therapeutic response unexpected [Unknown]
  - Diarrhoea [Recovered/Resolved]
  - Condition aggravated [Unknown]
  - Gait inability [Unknown]
  - Corneal infiltrates [Recovered/Resolved]
  - Peripheral swelling [Unknown]
  - Oropharyngeal pain [Recovered/Resolved]
  - Rheumatic disorder [Unknown]
  - Pain [Unknown]
